FAERS Safety Report 8111016-6 (Version None)
Quarter: 2012Q1

REPORT INFORMATION
  Report Type: 
  Country: None (occurrence: None)
  Receive Date: 20120203
  Receipt Date: 20110215
  Transmission Date: 20120608
  Serious: No
  Sender: FDA-Public Use
  Company Number: US-GLAXOSMITHKLINE-A0913775A

PATIENT
  Age: 43 Year
  Sex: Male

DRUGS (2)
  1. SEROQUEL [Concomitant]
  2. LAMOTRIGINE [Suspect]
     Indication: AFFECTIVE DISORDER
     Dosage: 200MG PER DAY
     Route: 048
     Dates: start: 20110115

REACTIONS (3)
  - RASH [None]
  - RASH MACULAR [None]
  - RASH ERYTHEMATOUS [None]
